FAERS Safety Report 12796900 (Version 2)
Quarter: 2016Q4

REPORT INFORMATION
  Report Type: Report from Study
  Country: US (occurrence: US)
  Receive Date: 20160930
  Receipt Date: 20161225
  Transmission Date: 20170207
  Serious: Yes (Other)
  Sender: FDA-Public Use
  Company Number: US-ASTRAZENECA-2016SF02533

PATIENT
  Age: 74 Year
  Sex: Female
  Weight: 55.2 kg

DRUGS (10)
  1. OXYCODONE [Concomitant]
     Active Substance: OXYCODONE
     Dosage: 15 MG
     Route: 065
     Dates: start: 20161018
  2. XARELTO [Concomitant]
     Active Substance: RIVAROXABAN
     Dosage: 20 MG
     Route: 065
     Dates: start: 20160901
  3. OXYCODONE [Concomitant]
     Active Substance: OXYCODONE
     Dosage: 40 MG
     Route: 065
     Dates: start: 20160607
  4. COLACE [Concomitant]
     Active Substance: DOCUSATE SODIUM
     Route: 065
     Dates: start: 20141005
  5. MIRTAZAPINE. [Concomitant]
     Active Substance: MIRTAZAPINE
     Dosage: 15 MG
     Route: 065
     Dates: start: 20160522
  6. COMPAZINE [Concomitant]
     Active Substance: PROCHLORPERAZINE MALEATE
     Dosage: 10 MG
     Route: 065
     Dates: start: 20160621
  7. OLAPARIB [Suspect]
     Active Substance: OLAPARIB
     Indication: OVARIAN CANCER
     Route: 048
     Dates: start: 20160614
  8. BYL719 [Suspect]
     Active Substance: ALPELISIB
     Indication: OVARIAN CANCER
     Route: 048
     Dates: start: 20160614, end: 20161129
  9. OXYCODONE [Concomitant]
     Active Substance: OXYCODONE
     Dosage: 40 MG
     Route: 065
     Dates: start: 20161010
  10. ZOFRAN [Concomitant]
     Active Substance: ONDANSETRON HYDROCHLORIDE
     Dosage: 8 MG
     Route: 065
     Dates: start: 20160621

REACTIONS (1)
  - Fistula [Unknown]

NARRATIVE: CASE EVENT DATE: 20160921
